FAERS Safety Report 17789702 (Version 1)
Quarter: 2020Q2

REPORT INFORMATION
  Report Type: Spontaneous
  Country: CA (occurrence: CA)
  Receive Date: 20200515
  Receipt Date: 20200515
  Transmission Date: 20200714
  Serious: Yes (Other)
  Sender: FDA-Public Use
  Company Number: CA-ICU MEDICAL, INC.-ICU2020CA00054

PATIENT

DRUGS (1)
  1. MORPHINE SULFATE INJECTION [Suspect]
     Active Substance: MORPHINE SULFATE
     Indication: PAIN MANAGEMENT
     Route: 042

REACTIONS (4)
  - Incorrect dose administered [Unknown]
  - Inadequate analgesia [Unknown]
  - Product prescribing error [Unknown]
  - Respiratory depression [Unknown]
